FAERS Safety Report 7951579-4 (Version None)
Quarter: 2011Q4

REPORT INFORMATION
  Report Type: 
  Country: None (occurrence: None)
  Receive Date: 20111201
  Receipt Date: 20111129
  Transmission Date: 20120403
  Serious: Yes (Hospitalization)
  Sender: FDA-Public Use
  Company Number: FR-ROCHE-1017611

PATIENT
  Age: 48 Year
  Sex: Female

DRUGS (6)
  1. AVASTIN [Suspect]
     Indication: BREAST CANCER
     Dosage: ON DAY 1 AND DAY 15
     Route: 042
     Dates: start: 20110325, end: 20110902
  2. METHYLPREDNISOLONE HEMISUCCINATE [Concomitant]
     Indication: ALLERGY PROPHYLAXIS
     Dates: start: 20110325, end: 20110902
  3. PACLITAXEL [Suspect]
     Indication: BREAST CANCER
     Dosage: ON DAY 1, DAY 8 AND DAY 15
     Route: 042
     Dates: start: 20110325, end: 20110902
  4. GRANISETRON [Concomitant]
     Dosage: 3MG/ML
     Route: 042
     Dates: start: 20110325, end: 20110902
  5. POLARAMINE [Concomitant]
     Indication: ALLERGY PROPHYLAXIS
     Dosage: 5MG/ML
     Route: 042
     Dates: start: 20110325, end: 20110902
  6. ZANTAC [Concomitant]
     Indication: ALLERGY PROPHYLAXIS
     Dosage: 50MG/2ML
     Dates: start: 20110325, end: 20110902

REACTIONS (1)
  - ANEURYSM RUPTURED [None]
